FAERS Safety Report 20182179 (Version 2)
Quarter: 2022Q1

REPORT INFORMATION
  Report Type: Spontaneous
  Country: DE (occurrence: DE)
  Receive Date: 20211214
  Receipt Date: 20220314
  Transmission Date: 20220424
  Serious: Yes (Death, Other)
  Sender: FDA-Public Use
  Company Number: DE-009507513-2111DEU008590

PATIENT
  Age: 62 Year
  Sex: Female

DRUGS (15)
  1. PEMETREXED [Suspect]
     Active Substance: PEMETREXED
     Indication: Non-small cell lung cancer
     Dosage: 500 MG/M2, UNKNOWN (FIRST-LINE, 4 CYCLES)
     Route: 042
     Dates: start: 201902, end: 201905
  2. PEMETREXED [Suspect]
     Active Substance: PEMETREXED
     Indication: Lung adenocarcinoma
     Dosage: UNK UNK, UNKNOWN. MAINTENANCE
     Route: 042
     Dates: start: 201906, end: 202002
  3. PEMBROLIZUMAB [Suspect]
     Active Substance: PEMBROLIZUMAB
     Indication: Non-small cell lung cancer
     Dosage: UNK, UNKNOWN, FIRST LINE, 4 CYCLES
     Route: 065
     Dates: start: 201902, end: 201905
  4. PEMBROLIZUMAB [Suspect]
     Active Substance: PEMBROLIZUMAB
     Indication: Lung adenocarcinoma
     Dosage: UNK UNK, UNKNOWN, MAINTENANCE
     Route: 065
     Dates: start: 201906, end: 202002
  5. CARBOPLATIN [Suspect]
     Active Substance: CARBOPLATIN
     Indication: Non-small cell lung cancer
     Dosage: UNK UNK, UNKNOWN, FIRST LINE, 4 CYCLES
     Route: 042
     Dates: start: 201902, end: 201905
  6. CARBOPLATIN [Suspect]
     Active Substance: CARBOPLATIN
     Indication: Lung adenocarcinoma
     Dosage: AUC 6MG/ML X MIN, Q21D
     Route: 042
     Dates: start: 202101, end: 202104
  7. DOCETAXEL [Suspect]
     Active Substance: DOCETAXEL
     Indication: Non-small cell lung cancer
     Dosage: UNK UNK, UNKNOWN, 2ND LINE
     Route: 042
     Dates: start: 202003, end: 202007
  8. DOCETAXEL [Suspect]
     Active Substance: DOCETAXEL
     Indication: Lung adenocarcinoma
  9. NINTEDANIB [Suspect]
     Active Substance: NINTEDANIB
     Indication: Non-small cell lung cancer
     Dosage: UNK UNK, UNKNOWN, 2ND LINE (200, TWICE DAILY, MAINTENANCE)
     Route: 042
     Dates: start: 202003, end: 202007
  10. NINTEDANIB [Suspect]
     Active Substance: NINTEDANIB
     Indication: Lung adenocarcinoma
     Dosage: UNK, UNKNOWN, MAINTENANCE
     Route: 042
     Dates: start: 202007, end: 202012
  11. BEVACIZUMAB [Suspect]
     Active Substance: BEVACIZUMAB
     Indication: Non-small cell lung cancer
     Dosage: 15 MG/KG (15 MILLIGRAM/KILOGRAM, D1, Q21D)
     Route: 042
     Dates: start: 202101, end: 202104
  12. BEVACIZUMAB [Suspect]
     Active Substance: BEVACIZUMAB
     Indication: Lung adenocarcinoma
     Dosage: UNK, CYCLICAL
     Route: 042
     Dates: start: 202105, end: 202108
  13. PACLITAXEL [Suspect]
     Active Substance: PACLITAXEL
     Indication: Non-small cell lung cancer
     Dosage: 200 MG (200 MG/M2, D1, Q21D)
     Route: 042
     Dates: start: 202101, end: 202104
  14. PACLITAXEL [Suspect]
     Active Substance: PACLITAXEL
     Indication: Lung adenocarcinoma
  15. ATEZOLIZUMAB [Suspect]
     Active Substance: ATEZOLIZUMAB
     Indication: Lung adenocarcinoma
     Dosage: UNK, CYCLICAL
     Route: 065
     Dates: start: 202105, end: 202108

REACTIONS (7)
  - Malignant neoplasm progression [Fatal]
  - Atypical pneumonia [Fatal]
  - Diarrhoea [Fatal]
  - Disturbance in attention [Fatal]
  - Asthenia [Fatal]
  - General physical health deterioration [Fatal]
  - Seizure [Unknown]

NARRATIVE: CASE EVENT DATE: 20200301
